FAERS Safety Report 7936491-9 (Version None)
Quarter: 2011Q4

REPORT INFORMATION
  Report Type: 
  Country: None (occurrence: None)
  Receive Date: 20111123
  Receipt Date: 20110828
  Transmission Date: 20120403
  Serious: No
  Sender: FDA-Public Use
  Company Number: US-BAYER-2011-085233

PATIENT
  Sex: Female

DRUGS (4)
  1. IBUPROFEN (ADVIL) [Concomitant]
     Indication: PAIN
  2. MOTRIN [Concomitant]
     Indication: MUSCULOSKELETAL PAIN
  3. ALEVE (CAPLET) [Suspect]
     Indication: PAIN
     Route: 048
  4. MOTRIN [Concomitant]
     Indication: NECK PAIN

REACTIONS (2)
  - MUSCULOSKELETAL PAIN [None]
  - NECK PAIN [None]
